FAERS Safety Report 11048118 (Version 3)
Quarter: 2017Q1

REPORT INFORMATION
  Report Type: Spontaneous
  Country: US (occurrence: US)
  Receive Date: 20150420
  Receipt Date: 20170123
  Transmission Date: 20170428
  Serious: No
  Sender: FDA-Public Use
  Company Number: US-PFIZER INC-2015134341

PATIENT
  Age: 69 Year
  Sex: Female
  Weight: 70.31 kg

DRUGS (6)
  1. CODEINE [Suspect]
     Active Substance: CODEINE
     Dosage: UNK
  2. BIAXIN [Suspect]
     Active Substance: CLARITHROMYCIN
     Dosage: UNK
  3. BENZYLPENICILLIN POTASSIUM [Suspect]
     Active Substance: PENICILLIN G POTASSIUM
     Dosage: UNK
  4. ASPIRIN. [Suspect]
     Active Substance: ASPIRIN
     Dosage: UNK
  5. CELEBREX [Suspect]
     Active Substance: CELECOXIB
     Dosage: UNK
  6. IODINE. [Suspect]
     Active Substance: IODINE
     Dosage: UNK

REACTIONS (1)
  - Drug hypersensitivity [Unknown]
